FAERS Safety Report 14368712 (Version 1)
Quarter: 2018Q1

REPORT INFORMATION
  Report Type: Spontaneous
  Country: US (occurrence: US)
  Receive Date: 20180109
  Receipt Date: 20180109
  Transmission Date: 20180509
  Serious: No
  Sender: FDA-Public Use
  Company Number: US-PFIZER INC-2016568066

PATIENT
  Age: 12 Year
  Sex: Male
  Weight: 45 kg

DRUGS (1)
  1. GENOTROPIN [Suspect]
     Active Substance: SOMATROPIN
     Indication: GROWTH HORMONE DEFICIENCY
     Dosage: 2 MG, DAILY (INJECTED INTO HIS ARM OR LEG BEFORE BED)
     Dates: start: 201603

REACTIONS (4)
  - Poor quality drug administered [Unknown]
  - Device breakage [Unknown]
  - Gynaecomastia [Unknown]
  - Drug dose omission [Unknown]
